FAERS Safety Report 6866091-3 (Version None)
Quarter: 2010Q3

REPORT INFORMATION
  Report Type: 
  Country: None (occurrence: None)
  Receive Date: 20100722
  Receipt Date: 20100712
  Transmission Date: 20110219
  Serious: Yes (Other)
  Sender: FDA-Public Use
  Company Number: JP-JNJFOC-20100704765

PATIENT
  Sex: Female
  Weight: 50 kg

DRUGS (16)
  1. DOXIL [Suspect]
     Indication: UTERINE CANCER
     Dosage: CYCLE 3
     Route: 042
  2. DOXIL [Suspect]
     Dosage: CYCLE 1
     Route: 042
  3. DOXIL [Suspect]
     Dosage: CYCLE 2
     Route: 042
  4. BERIZYM [Concomitant]
     Indication: GASTRITIS
     Route: 048
  5. MYSLEE [Concomitant]
     Indication: INSOMNIA
     Route: 048
  6. ALFAROL [Concomitant]
     Indication: HYPERTENSION
     Route: 048
  7. ALLEGRA [Concomitant]
     Indication: CONJUNCTIVITIS ALLERGIC
     Route: 048
  8. NULOTAN [Concomitant]
     Indication: HYPERTENSION
     Route: 048
  9. MAGLAX [Concomitant]
     Indication: CONSTIPATION
     Route: 048
  10. MOHRUS TAPE [Concomitant]
     Indication: BACK PAIN
     Route: 003
  11. PYDOXAL [Concomitant]
     Indication: PROPHYLAXIS
     Route: 048
  12. HACHIAZULE [Concomitant]
     Indication: PROPHYLAXIS
     Route: 002
  13. RAMELTEON [Concomitant]
     Indication: PROPHYLAXIS
     Route: 048
  14. RIKKUNSHI-TO [Concomitant]
     Indication: DECREASED APPETITE
     Route: 048
  15. EURAX [Concomitant]
     Indication: PALMAR-PLANTAR ERYTHRODYSAESTHESIA SYNDROME
     Route: 061
  16. GASTER [Concomitant]
     Indication: GASTRITIS
     Route: 048

REACTIONS (2)
  - NEUTROPHIL COUNT DECREASED [None]
  - OFF LABEL USE [None]
